FAERS Safety Report 8268817-3 (Version None)
Quarter: 2012Q2

REPORT INFORMATION
  Report Type: 
  Country: None (occurrence: None)
  Receive Date: 20120409
  Receipt Date: 20120409
  Transmission Date: 20120825
  Serious: Yes (Death, Life-Threatening, Hospitalization)
  Sender: FDA-Public Use
  Company Number: None

PATIENT
  Age: 77 Year
  Sex: Male
  Weight: 70 kg

DRUGS (12)
  1. METOPROLOL TARTRATE [Concomitant]
     Route: 048
  2. ATORVASTATIN [Concomitant]
     Route: 048
  3. FERROUS SULFATE TAB [Concomitant]
     Route: 048
  4. OMEPRAZOLE [Concomitant]
     Route: 048
  5. TAMSULOSIN HCL [Concomitant]
  6. TIOTROPIUM [Concomitant]
  7. MULTI-VITAMIN [Concomitant]
     Route: 048
  8. ACETAMINOPHEN [Concomitant]
     Route: 048
  9. DABIGATRAN [Suspect]
     Indication: ATRIAL FIBRILLATION
     Dosage: 150 MG
     Route: 048
     Dates: start: 20111011, end: 20120318
  10. ASPIRIN [Concomitant]
     Route: 048
  11. LORAZEPAM [Concomitant]
     Route: 048
  12. AMIODARONE HYDROCHLORIDE [Concomitant]
     Route: 048

REACTIONS (14)
  - RECTAL HAEMORRHAGE [None]
  - HEPATIC FUNCTION ABNORMAL [None]
  - ANTICOAGULATION DRUG LEVEL ABOVE THERAPEUTIC [None]
  - INTERNATIONAL NORMALISED RATIO INCREASED [None]
  - INTRA-ABDOMINAL HAEMORRHAGE [None]
  - PROTHROMBIN TIME PROLONGED [None]
  - ACTIVATED PARTIAL THROMBOPLASTIN TIME PROLONGED [None]
  - LEUKOCYTOSIS [None]
  - GASTROINTESTINAL INFLAMMATION [None]
  - INTESTINAL ISCHAEMIA [None]
  - HAEMODIALYSIS [None]
  - VENTRICULAR TACHYCARDIA [None]
  - COAGULOPATHY [None]
  - PROCEDURAL HYPOTENSION [None]
